FAERS Safety Report 25668127 (Version 1)
Quarter: 2025Q3

REPORT INFORMATION
  Report Type: Spontaneous
  Country: IN (occurrence: IN)
  Receive Date: 20250812
  Receipt Date: 20250812
  Transmission Date: 20251020
  Serious: Yes (Hospitalization, Other)
  Sender: UNICHEM
  Company Number: IN-UNICHEM LABORATORIES LIMITED-UNI-2025-IN-003004

PATIENT

DRUGS (4)
  1. DIVALPROEX SODIUM [Suspect]
     Active Substance: DIVALPROEX SODIUM
     Indication: Generalised tonic-clonic seizure
     Route: 065
  2. DIVALPROEX SODIUM [Suspect]
     Active Substance: DIVALPROEX SODIUM
     Route: 065
  3. CLOBAZAM [Concomitant]
     Active Substance: CLOBAZAM
     Indication: Generalised tonic-clonic seizure
     Route: 065
  4. PHENOBARBITAL [Concomitant]
     Active Substance: PHENOBARBITAL
     Indication: Generalised tonic-clonic seizure
     Route: 065

REACTIONS (2)
  - Toxicity to various agents [Unknown]
  - Toxic encephalopathy [Recovering/Resolving]
